FAERS Safety Report 5330373-7 (Version None)
Quarter: 2007Q2

REPORT INFORMATION
  Report Type: 
  Country: None (occurrence: None)
  Receive Date: 20070521
  Receipt Date: 20070508
  Transmission Date: 20071010
  Serious: Yes (Other)
  Sender: FDA-Public Use
  Company Number: US-SHR-US-2007-014170

PATIENT
  Age: 41 Year
  Sex: Female

DRUGS (1)
  1. BETASERON [Suspect]
     Dosage: 4 MIU, EVERY 2D
     Route: 058
     Dates: start: 20070311

REACTIONS (4)
  - DERMATITIS BULLOUS [None]
  - ORAL MUCOSAL BLISTERING [None]
  - RASH PAPULAR [None]
  - SKIN ULCER [None]
